FAERS Safety Report 16554871 (Version 3)
Quarter: 2020Q1

REPORT INFORMATION
  Report Type: Spontaneous
  Country: US (occurrence: US)
  Receive Date: 20190710
  Receipt Date: 20200212
  Transmission Date: 20200409
  Serious: Yes (Life-Threatening, Hospitalization, Disabling, Other)
  Sender: FDA-Public Use
  Company Number: US-SHIRE-US201921457

PATIENT
  Age: 56 Year
  Sex: Male
  Weight: 114.74 kg

DRUGS (23)
  1. HUMIRA [Suspect]
     Active Substance: ADALIMUMAB
     Dosage: 40 MILLIGRAM, 1X/2WKS
     Route: 058
     Dates: start: 201505, end: 201701
  2. HUMIRA [Suspect]
     Active Substance: ADALIMUMAB
     Dosage: 80 MILLIGRAM, 1X/2WKS
     Route: 058
     Dates: start: 201710
  3. PREDNISONE. [Suspect]
     Active Substance: PREDNISONE
     Indication: INTESTINAL OBSTRUCTION
     Dosage: UNK
     Route: 065
     Dates: start: 2014
  4. GENTAMICIN. [Concomitant]
     Active Substance: GENTAMICIN
     Indication: PRODUCT USED FOR UNKNOWN INDICATION
  5. CARTIA XT [Concomitant]
     Active Substance: DILTIAZEM HYDROCHLORIDE
     Indication: PRODUCT USED FOR UNKNOWN INDICATION
  6. HUMIRA [Suspect]
     Active Substance: ADALIMUMAB
     Dosage: 160 MILLIGRAM
     Route: 058
     Dates: start: 201710, end: 201710
  7. DOXYCYCLINE. [Concomitant]
     Active Substance: DOXYCYCLINE
     Indication: PRODUCT USED FOR UNKNOWN INDICATION
  8. CARVEDILOL. [Concomitant]
     Active Substance: CARVEDILOL
     Indication: PRODUCT USED FOR UNKNOWN INDICATION
  9. ASACOL [Concomitant]
     Active Substance: MESALAMINE
     Indication: PRODUCT USED FOR UNKNOWN INDICATION
  10. PREDNISONE. [Suspect]
     Active Substance: PREDNISONE
     Indication: CROHN^S DISEASE
  11. PREDNISONE. [Suspect]
     Active Substance: PREDNISONE
     Indication: CONDITION AGGRAVATED
  12. HYDROGEN PEROXIDE. [Concomitant]
     Active Substance: HYDROGEN PEROXIDE
     Indication: PRODUCT USED FOR UNKNOWN INDICATION
  13. VITAMIN B12 [Concomitant]
     Active Substance: CYANOCOBALAMIN
     Indication: PRODUCT USED FOR UNKNOWN INDICATION
  14. PENTASA [Suspect]
     Active Substance: MESALAMINE
     Indication: CROHN^S DISEASE
     Dosage: UNK
     Route: 048
     Dates: start: 2017
  15. HUMIRA [Suspect]
     Active Substance: ADALIMUMAB
     Indication: CROHN^S DISEASE
     Dosage: 40 MILLIGRAM, 1X/2WKS
     Route: 058
     Dates: start: 201402, end: 201505
  16. VITAMINS NOS [Concomitant]
     Active Substance: VITAMINS
     Indication: PRODUCT USED FOR UNKNOWN INDICATION
  17. CIPRO [Concomitant]
     Active Substance: CIPROFLOXACIN HYDROCHLORIDE
     Indication: PRODUCT USED FOR UNKNOWN INDICATION
  18. FUROSEMIDE. [Concomitant]
     Active Substance: FUROSEMIDE
     Indication: PRODUCT USED FOR UNKNOWN INDICATION
  19. CARDIZEM [Concomitant]
     Active Substance: DILTIAZEM HYDROCHLORIDE
     Indication: PRODUCT USED FOR UNKNOWN INDICATION
  20. COUMADIN [Concomitant]
     Active Substance: WARFARIN SODIUM
     Indication: ATRIAL FIBRILLATION
  21. MORPHINE [Concomitant]
     Active Substance: MORPHINE
     Indication: PRODUCT USED FOR UNKNOWN INDICATION
  22. FLAGYL [METRONIDAZOLE BENZOATE] [Concomitant]
     Active Substance: METRONIDAZOLE BENZOATE
     Indication: PRODUCT USED FOR UNKNOWN INDICATION
  23. WARFARIN [Concomitant]
     Active Substance: WARFARIN
     Indication: PRODUCT USED FOR UNKNOWN INDICATION

REACTIONS (50)
  - Small intestinal obstruction [Recovered/Resolved]
  - Drug ineffective [Not Recovered/Not Resolved]
  - Intestinal obstruction [Recovered/Resolved]
  - Gastrointestinal inflammation [Unknown]
  - Weight decreased [Recovering/Resolving]
  - Pain in extremity [Recovered/Resolved]
  - Abdominal discomfort [Not Recovered/Not Resolved]
  - Device dislocation [Unknown]
  - Gastric mucosal lesion [Unknown]
  - Apnoea [Recovered/Resolved]
  - Abdominal hernia [Not Recovered/Not Resolved]
  - Gastrointestinal oedema [Unknown]
  - International normalised ratio fluctuation [Not Recovered/Not Resolved]
  - Stoma site discharge [Recovered/Resolved]
  - Muscle atrophy [Unknown]
  - Wound [None]
  - Musculoskeletal pain [Unknown]
  - Stoma site oedema [Not Recovered/Not Resolved]
  - Incorrect dose administered [Unknown]
  - Electrical burn [Recovered/Resolved]
  - Sepsis [Recovered/Resolved]
  - Impaired healing [Recovered/Resolved]
  - Abdominal abscess [Recovered/Resolved]
  - Oesophageal pain [Unknown]
  - Malabsorption [Unknown]
  - Dysphagia [Unknown]
  - Atrial fibrillation [Not Recovered/Not Resolved]
  - Intestinal perforation [Recovered/Resolved]
  - Procedural pain [Unknown]
  - White blood cell count increased [Recovered/Resolved]
  - Blood glucose increased [Unknown]
  - Device issue [Unknown]
  - Gastrointestinal anastomotic leak [Recovered/Resolved]
  - Paralysis [Recovered/Resolved]
  - Post procedural complication [Recovered/Resolved]
  - Crohn^s disease [Recovered/Resolved]
  - Intestinal stenosis [Unknown]
  - Nerve injury [Recovered/Resolved]
  - Paraesthesia [Not Recovered/Not Resolved]
  - Small intestinal perforation [Recovered/Resolved]
  - Heart rate abnormal [Recovered/Resolved]
  - Stoma complication [Not Recovered/Not Resolved]
  - Blood pressure increased [Recovered/Resolved]
  - Gastrointestinal stoma complication [Recovered/Resolved]
  - Staphylococcal infection [Unknown]
  - Injection site urticaria [Not Recovered/Not Resolved]
  - Stomal hernia [Recovered/Resolved]
  - Burning sensation [Not Recovered/Not Resolved]
  - Abdominal pain upper [Unknown]
  - Abdominal pain [Not Recovered/Not Resolved]

NARRATIVE: CASE EVENT DATE: 2014
